FAERS Safety Report 17861331 (Version 1)
Quarter: 2020Q2

REPORT INFORMATION
  Report Type: Spontaneous
  Country: US (occurrence: US)
  Receive Date: 20200604
  Receipt Date: 20200604
  Transmission Date: 20200714
  Serious: No
  Sender: FDA-Public Use
  Company Number: US-PFIZER INC-2020216936

PATIENT
  Age: 62 Year
  Sex: Female

DRUGS (2)
  1. MEBARAL [Suspect]
     Active Substance: MEPHOBARBITAL
     Dosage: UNK
     Dates: end: 2006
  2. DILANTIN [Suspect]
     Active Substance: PHENYTOIN
     Dosage: UNK
     Dates: end: 2006

REACTIONS (1)
  - Drug ineffective [Unknown]
